FAERS Safety Report 22083806 (Version 2)
Quarter: 2023Q1

REPORT INFORMATION
  Report Type: Spontaneous
  Country: US (occurrence: US)
  Receive Date: 20230310
  Receipt Date: 20230321
  Transmission Date: 20230417
  Serious: Yes (Other)
  Sender: FDA-Public Use
  Company Number: US-PFIZER INC-202300102495

PATIENT
  Age: 81 Year
  Sex: Male

DRUGS (2)
  1. MENEST [Suspect]
     Active Substance: ESTROGENS, ESTERIFIED
     Dosage: UNK
  2. JANUVIA [Suspect]
     Active Substance: SITAGLIPTIN PHOSPHATE
     Dosage: UNK

REACTIONS (1)
  - Neoplasm malignant [Unknown]
